FAERS Safety Report 8024508-5 (Version None)
Quarter: 2012Q1

REPORT INFORMATION
  Report Type: 
  Country: None (occurrence: None)
  Receive Date: 20120105
  Receipt Date: 20120102
  Transmission Date: 20120608
  Serious: Yes (Death)
  Sender: FDA-Public Use
  Company Number: DK-B.I. PHARMACEUTICALS,INC./RIDGEFIELD-2012-SW-00002DB

PATIENT
  Sex: Male

DRUGS (7)
  1. RAMIPRIL [Concomitant]
     Indication: CARDIAC FAILURE
  2. TRAJENTA [Suspect]
     Indication: DIABETES MELLITUS
     Dosage: 5 MG
     Route: 048
     Dates: start: 20111114
  3. AMLODIPIN ACTAVIS [Concomitant]
     Indication: HYPERTENSION
  4. FUROSEMIDE [Concomitant]
     Indication: CARDIAC FAILURE
  5. SPIRONOLACTONE [Concomitant]
     Indication: CARDIAC FAILURE
  6. DIGOXIN DAK [Concomitant]
     Indication: ATRIAL FIBRILLATION
  7. WARFARIN SODIUM [Concomitant]
     Indication: ATRIAL FIBRILLATION

REACTIONS (1)
  - DEATH [None]
